FAERS Safety Report 12913930 (Version 1)
Quarter: 2016Q4

REPORT INFORMATION
  Report Type: Spontaneous
  Country: US (occurrence: US)
  Receive Date: 20161104
  Receipt Date: 20161104
  Transmission Date: 20170207
  Serious: No
  Sender: FDA-Public Use
  Company Number: US-LEADING PHARMA-1059266

PATIENT
  Sex: Male

DRUGS (1)
  1. FUROSEMIDE TABLETS , 20 MG, 40 MG AND 80 MG [Suspect]
     Active Substance: FUROSEMIDE
     Route: 048

REACTIONS (6)
  - Weight increased [None]
  - Micturition frequency decreased [None]
  - Therapeutic response changed [None]
  - Blood pressure increased [None]
  - Heart rate increased [None]
  - Product substitution issue [None]
